FAERS Safety Report 13364812 (Version 1)
Quarter: 2017Q1

REPORT INFORMATION
  Report Type: Spontaneous
  Country: US (occurrence: US)
  Receive Date: 20170323
  Receipt Date: 20170323
  Transmission Date: 20170429
  Serious: No
  Sender: FDA-Public Use
  Company Number: US-ROCHE-1349017

PATIENT
  Sex: Female

DRUGS (12)
  1. CLARITIN [Concomitant]
     Active Substance: LORATADINE
  2. LYSINE [Concomitant]
     Active Substance: LYSINE
  3. XOLAIR [Suspect]
     Active Substance: OMALIZUMAB
     Indication: ASTHMA
     Route: 058
  4. CALCIUM CARBONATE. [Concomitant]
     Active Substance: CALCIUM CARBONATE
  5. COENZYME Q10 [Concomitant]
     Active Substance: UBIDECARENONE
  6. FIBER SUPPLEMENT [Concomitant]
  7. FISH OIL [Concomitant]
     Active Substance: FISH OIL
  8. NETTLE ROOT [Concomitant]
  9. BIOTIN [Concomitant]
     Active Substance: BIOTIN
     Route: 065
  10. PROGESTERONE. [Concomitant]
     Active Substance: PROGESTERONE
  11. DULERA [Concomitant]
     Active Substance: FORMOTEROL FUMARATE DIHYDRATE\MOMETASONE FUROATE
  12. PROAIR HFA [Concomitant]
     Active Substance: ALBUTEROL SULFATE

REACTIONS (2)
  - Cyst [Unknown]
  - Headache [Unknown]
